FAERS Safety Report 25158860 (Version 2)
Quarter: 2025Q2

REPORT INFORMATION
  Report Type: Spontaneous
  Country: US (occurrence: US)
  Receive Date: 20250404
  Receipt Date: 20250423
  Transmission Date: 20250717
  Serious: Yes (Other)
  Sender: AUROBINDO
  Company Number: US-MLMSERVICE-20250317-PI449674-00225-1

PATIENT
  Age: 44 Year
  Sex: Male

DRUGS (1)
  1. MINOXIDIL [Suspect]
     Active Substance: MINOXIDIL
     Indication: Hypertension
     Route: 048

REACTIONS (3)
  - Pericardial effusion [Unknown]
  - Cardiac tamponade [Unknown]
  - Blood loss anaemia [Unknown]
